FAERS Safety Report 9391734 (Version 3)
Quarter: 2013Q3

REPORT INFORMATION
  Report Type: Spontaneous
  Country: JP (occurrence: JP)
  Receive Date: 20130709
  Receipt Date: 20130913
  Transmission Date: 20140515
  Serious: Yes (Other)
  Sender: FDA-Public Use
  Company Number: JP-GLAXOSMITHKLINE-B0905660A

PATIENT
  Age: 51 Year
  Sex: Female

DRUGS (3)
  1. LAMICTAL [Suspect]
     Indication: BIPOLAR DISORDER
     Dosage: 25MG PER DAY
     Route: 048
     Dates: start: 20130529, end: 20130629
  2. JZOLOFT [Suspect]
     Indication: DEPRESSION
     Route: 048
  3. AMOXAN [Suspect]
     Indication: DEPRESSION
     Route: 048

REACTIONS (24)
  - Hypoacusis [Unknown]
  - Dizziness [Recovered/Resolved]
  - Oropharyngeal pain [Unknown]
  - Lymphadenopathy [Unknown]
  - Pyrexia [Unknown]
  - Nasopharyngitis [Recovered/Resolved]
  - Sensation of foreign body [Unknown]
  - Paraesthesia oral [Unknown]
  - Oedema peripheral [Unknown]
  - Dizziness [Unknown]
  - Rash [Recovered/Resolved]
  - Muscle tightness [Unknown]
  - Mobility decreased [Unknown]
  - Diarrhoea [Unknown]
  - Viral infection [Unknown]
  - Headache [Unknown]
  - Nausea [Unknown]
  - Pyrexia [Unknown]
  - Lymphadenitis [Unknown]
  - Nausea [Unknown]
  - Meningism [Unknown]
  - Drug eruption [Unknown]
  - Insomnia [Unknown]
  - Drug withdrawal syndrome [Unknown]
